FAERS Safety Report 12857705 (Version 1)
Quarter: 2016Q4

REPORT INFORMATION
  Report Type: Spontaneous
  Country: BR (occurrence: BR)
  Receive Date: 20161018
  Receipt Date: 20161018
  Transmission Date: 20170207
  Serious: Yes (Other)
  Sender: FDA-Public Use
  Company Number: BR-009507513-1610BRA005737

PATIENT
  Age: 80 Year
  Sex: Male
  Weight: 108 kg

DRUGS (5)
  1. FUROSEMIDE. [Suspect]
     Active Substance: FUROSEMIDE
     Indication: HYPERTENSION
     Dosage: UNK
     Route: 048
  2. ENALAPRIL MALEATE. [Interacting]
     Active Substance: ENALAPRIL MALEATE
     Indication: HYPERTENSION
     Dosage: UNK
     Route: 048
  3. ASPIRIN. [Interacting]
     Active Substance: ASPIRIN
     Indication: HYPERTENSION
     Dosage: UNK
     Route: 048
  4. ATENOLOL. [Interacting]
     Active Substance: ATENOLOL
     Indication: HYPERTENSION
     Dosage: UNK
  5. CARDURAN [Interacting]
     Active Substance: DOXAZOSIN MESYLATE
     Dosage: UNK
     Dates: end: 20160927

REACTIONS (7)
  - Prostatic disorder [Unknown]
  - Drug interaction [Unknown]
  - Hypoaesthesia [Not Recovered/Not Resolved]
  - Blood pressure decreased [Unknown]
  - Rash [Recovering/Resolving]
  - Micturition disorder [Unknown]
  - Myocardial infarction [Unknown]
